FAERS Safety Report 5931708-4 (Version None)
Quarter: 2008Q4

REPORT INFORMATION
  Report Type: 
  Country: None (occurrence: None)
  Receive Date: 20081023
  Receipt Date: 20060731
  Transmission Date: 20090506
  Serious: Yes (Death, Hospitalization, Other)
  Sender: FDA-Public Use
  Company Number: 2006AL002251

PATIENT
  Age: 91 Year
  Sex: Female

DRUGS (5)
  1. DICLOFENAC SODIUM [Suspect]
     Indication: OSTEOARTHRITIS
  2. IBUPROFEN [Suspect]
     Indication: OSTEOARTHRITIS
  3. SPIRONOLACTONE [Suspect]
     Indication: HYPERTENSION
  4. DIGOXIN [Suspect]
  5. BUMETANIDE [Concomitant]

REACTIONS (3)
  - FALL [None]
  - RENAL FAILURE [None]
  - THERAPEUTIC AGENT TOXICITY [None]
